FAERS Safety Report 20231211 (Version 1)
Quarter: 2021Q4

REPORT INFORMATION
  Report Type: Spontaneous
  Country: US (occurrence: US)
  Receive Date: 20211227
  Receipt Date: 20211227
  Transmission Date: 20220303
  Serious: Yes (Other)
  Sender: FDA-Public Use
  Company Number: US-GLAXOSMITHKLINE-US2021259760

PATIENT
  Age: 52 Year
  Sex: Female

DRUGS (1)
  1. NUCALA [Suspect]
     Active Substance: MEPOLIZUMAB
     Indication: Asthma
     Dosage: 100 MG, Z( EVERY 28 DAYS)
     Route: 058
     Dates: start: 20211208

REACTIONS (8)
  - Altered state of consciousness [Unknown]
  - Asthma [Not Recovered/Not Resolved]
  - Feeling of body temperature change [Unknown]
  - Fatigue [Unknown]
  - Heart rate decreased [Unknown]
  - Hypokinesia [Unknown]
  - Cough [Unknown]
  - Abdominal discomfort [Unknown]

NARRATIVE: CASE EVENT DATE: 20211208
